FAERS Safety Report 4500545-X (Version None)
Quarter: 2004Q4

REPORT INFORMATION
  Report Type: 
  Country: None (occurrence: None)
  Receive Date: 20041109
  Receipt Date: 20041021
  Transmission Date: 20050328
  Serious: Yes (Hospitalization)
  Sender: FDA-Public Use
  Company Number: US_0406103653

PATIENT
  Age: 59 Year
  Sex: Female
  Weight: 73 kg

DRUGS (21)
  1. GEMCITABINE HYDROCHLORIDE-IV (GEMCITABINE) [Suspect]
     Indication: BREAST CANCER METASTATIC
     Dosage: 1500 MG/M2
     Dates: start: 20040422
  2. CARBOPLATIN [Suspect]
     Indication: BREAST CANCER METASTATIC
     Dates: start: 20040422
  3. ACTIVASE [Concomitant]
  4. GLUCOPHAGE [Concomitant]
  5. GLUCOTROL [Concomitant]
  6. SYNTHROID [Concomitant]
  7. ZOCOR [Concomitant]
  8. FOSAMAX [Concomitant]
  9. KYTRIL [Concomitant]
  10. COUMADIN [Concomitant]
  11. COMPAZINE [Concomitant]
  12. MILK OF MAGNESIA TAB [Concomitant]
  13. ULTRAM [Concomitant]
  14. ARANESP [Concomitant]
  15. SENOKOT [Concomitant]
  16. DONNATAL [Concomitant]
  17. LORAZEPAM [Concomitant]
  18. PREVACID [Concomitant]
  19. ACETYLSALICYLIC ACID SRT [Concomitant]
  20. ACTONEL [Concomitant]
  21. DYAZIDE [Concomitant]

REACTIONS (22)
  - ABDOMINAL RIGIDITY [None]
  - DEEP VEIN THROMBOSIS [None]
  - DIZZINESS POSTURAL [None]
  - DYSPNOEA [None]
  - FLUSHING [None]
  - HAEMATOCRIT DECREASED [None]
  - HAEMOGLOBIN DECREASED [None]
  - HYPOVOLAEMIA [None]
  - INTESTINAL OBSTRUCTION [None]
  - IRRITABLE BOWEL SYNDROME [None]
  - METASTASES TO PERITONEUM [None]
  - NAUSEA [None]
  - NEUTROPENIA [None]
  - PERICARDIAL EFFUSION [None]
  - PLATELET COUNT DECREASED [None]
  - PROTHROMBIN TIME PROLONGED [None]
  - SINUS TACHYCARDIA [None]
  - SUBCLAVIAN VEIN THROMBOSIS [None]
  - SYNCOPE [None]
  - VENA CAVA THROMBOSIS [None]
  - VOMITING [None]
  - WHITE BLOOD CELL COUNT DECREASED [None]
